FAERS Safety Report 24201041 (Version 1)
Quarter: 2024Q3

REPORT INFORMATION
  Report Type: Spontaneous
  Country: NL (occurrence: NL)
  Receive Date: 20240812
  Receipt Date: 20240812
  Transmission Date: 20241016
  Serious: Yes (Other)
  Sender: CIVICA
  Company Number: NL-CIVICARX-2024-NL-000032

PATIENT
  Age: 42 Year
  Sex: Female

DRUGS (4)
  1. BUPIVACAINE HYDROCHLORIDE [Suspect]
     Active Substance: BUPIVACAINE HYDROCHLORIDE
     Indication: Postoperative analgesia
     Dosage: 6,25 MG / EPIDURAL
  2. sufentanila [Concomitant]
     Indication: Postoperative analgesia
     Dosage: 5 MCG PER HOUR/ EPIDURAL
  3. ACETAMINOPHEN [Concomitant]
     Active Substance: ACETAMINOPHEN
     Indication: Postoperative analgesia
  4. PREGABALIN [Concomitant]
     Active Substance: PREGABALIN
     Indication: Postoperative analgesia

REACTIONS (1)
  - Pleural effusion [Unknown]
